FAERS Safety Report 7410074-1 (Version None)
Quarter: 2011Q2

REPORT INFORMATION
  Report Type: 
  Country: None (occurrence: None)
  Receive Date: 20110412
  Receipt Date: 20110405
  Transmission Date: 20111010
  Serious: Yes (Other)
  Sender: FDA-Public Use
  Company Number: FR-PFIZER INC-2011074878

PATIENT
  Age: 44 Year
  Sex: Male

DRUGS (1)
  1. EFFEXOR XR [Suspect]

REACTIONS (2)
  - HEADACHE [None]
  - HYPERTENSION [None]
